FAERS Safety Report 14646458 (Version 1)
Quarter: 2018Q1

REPORT INFORMATION
  Report Type: Spontaneous
  Country: NL (occurrence: NL)
  Receive Date: 20180316
  Receipt Date: 20180316
  Transmission Date: 20180509
  Serious: Yes (Other)
  Sender: FDA-Public Use
  Company Number: NL-ROCHE-2086455

PATIENT
  Age: 49 Year
  Sex: Female

DRUGS (1)
  1. RITUXIMAB. [Suspect]
     Active Substance: RITUXIMAB
     Indication: PRODUCT USED FOR UNKNOWN INDICATION
     Dosage: UNK
     Route: 065

REACTIONS (10)
  - Sleep disorder [Recovering/Resolving]
  - Neuropathy peripheral [Recovering/Resolving]
  - Paraesthesia [Recovering/Resolving]
  - Pain [Recovering/Resolving]
  - Dysaesthesia [Recovering/Resolving]
  - Quality of life decreased [Recovering/Resolving]
  - Neuralgia [Recovering/Resolving]
  - Mood altered [Recovering/Resolving]
  - Hypoaesthesia [Recovering/Resolving]
  - Hypokinesia [Recovering/Resolving]
